FAERS Safety Report 6730759-X (Version None)
Quarter: 2010Q2

REPORT INFORMATION
  Report Type: 
  Country: None (occurrence: None)
  Receive Date: 20100518
  Receipt Date: 20100512
  Transmission Date: 20101027
  Serious: Yes (Hospitalization)
  Sender: FDA-Public Use
  Company Number: US-BAYER-200918511NA

PATIENT
  Age: 80 Year
  Sex: Female
  Weight: 63 kg

DRUGS (11)
  1. SORAFENIB [Suspect]
     Indication: NON-SMALL CELL LUNG CANCER
     Dosage: TOTAL DAILY DOSE: 800 MG  UNIT DOSE: 200 MG
     Route: 048
     Dates: start: 20090227, end: 20090101
  2. SORAFENIB [Suspect]
     Dosage: TOTAL DAILY DOSE: 800 MG  UNIT DOSE: 200 MG
     Route: 048
     Dates: start: 20090101, end: 20100331
  3. ERLOTINIB [Suspect]
     Indication: NON-SMALL CELL LUNG CANCER
     Dosage: TOTAL DAILY DOSE: 150 MG
     Route: 048
     Dates: end: 20100331
  4. ERLOTINIB [Suspect]
     Dosage: TOTAL DAILY DOSE: 150 MG
     Route: 048
     Dates: start: 20090227
  5. NORVASC [Concomitant]
     Dosage: TOTAL DAILY DOSE: 10 MG
     Dates: start: 20081001
  6. NORVASC [Concomitant]
     Dosage: TOTAL DAILY DOSE: 5 MG
     Dates: start: 20090801
  7. COREG [Concomitant]
     Dosage: TOTAL DAILY DOSE: 50 MG
     Route: 048
     Dates: start: 20081001
  8. LOZOL [Concomitant]
     Dosage: TOTAL DAILY DOSE: 2.5 MG
     Route: 048
     Dates: start: 20060601
  9. LIPITOR [Concomitant]
     Dosage: TOTAL DAILY DOSE: 10 MG
     Dates: start: 20070301
  10. FERROUS SULFATE TAB [Concomitant]
     Dosage: TOTAL DAILY DOSE: 325 MG
     Dates: start: 20070129
  11. LOMOTIL [Concomitant]
     Dosage: 1 TAB
     Route: 048
     Dates: start: 20090410

REACTIONS (6)
  - ASTHENIA [None]
  - BLOOD ELECTROLYTES ABNORMAL [None]
  - BRONCHITIS [None]
  - DIARRHOEA [None]
  - DYSPNOEA [None]
  - HYPOXIA [None]
